FAERS Safety Report 13427071 (Version 2)
Quarter: 2017Q2

REPORT INFORMATION
  Report Type: Report from Study
  Country: US (occurrence: US)
  Receive Date: 20170411
  Receipt Date: 20170504
  Transmission Date: 20170830
  Serious: Yes (Hospitalization, Disabling)
  Sender: FDA-Public Use
  Company Number: PHEH2017US010420

PATIENT
  Age: 66 Year
  Sex: Female
  Weight: 76.64 kg

DRUGS (1)
  1. GILENYA [Suspect]
     Active Substance: FINGOLIMOD HYDROCHLORIDE
     Indication: MULTIPLE SCLEROSIS
     Dosage: 0.5 MG, QD
     Route: 048
     Dates: start: 20110804

REACTIONS (2)
  - Ischaemic stroke [Recovered/Resolved with Sequelae]
  - Motor dysfunction [Unknown]

NARRATIVE: CASE EVENT DATE: 20161210
